FAERS Safety Report 22129597 (Version 1)
Quarter: 2023Q1

REPORT INFORMATION
  Report Type: Spontaneous
  Country: US (occurrence: US)
  Receive Date: 20230323
  Receipt Date: 20230323
  Transmission Date: 20230418
  Serious: Yes (Hospitalization, Other)
  Sender: FDA-Public Use
  Company Number: US-Accord-305575

PATIENT
  Age: 33 Year
  Sex: Male

DRUGS (7)
  1. BUSPIRONE HYDROCHLORIDE [Suspect]
     Active Substance: BUSPIRONE HYDROCHLORIDE
     Indication: Generalised anxiety disorder
     Route: 045
  2. VALPROIC ACID [Concomitant]
     Active Substance: VALPROIC ACID
     Indication: Generalised anxiety disorder
     Dosage: 1000 MG DAILY
  3. PALIPERIDONE PALMITATE [Concomitant]
     Active Substance: PALIPERIDONE PALMITATE
     Indication: Schizoaffective disorder bipolar type
     Dosage: 156 MG INTRAMUSCULAR INJECTIONS EVERY 4 WEEKS
     Route: 030
  4. TRAZODONE [Concomitant]
     Active Substance: TRAZODONE HYDROCHLORIDE
     Indication: Generalised anxiety disorder
     Dosage: 50 MG DAILY
  5. GABAPENTIN [Concomitant]
     Active Substance: GABAPENTIN
     Indication: Product used for unknown indication
     Dosage: 900 MG DAILY
  6. QUETIAPINE [Concomitant]
     Active Substance: QUETIAPINE
     Indication: Schizoaffective disorder bipolar type
     Dosage: 300 MG DAILY
  7. BUSPIRONE HYDROCHLORIDE [Suspect]
     Active Substance: BUSPIRONE HYDROCHLORIDE
     Indication: Generalised anxiety disorder
     Dosage: 15 MG THREE TIMES A DAY

REACTIONS (10)
  - Psychotic disorder [Recovering/Resolving]
  - Delusion [Recovering/Resolving]
  - Intentional product use issue [Unknown]
  - Drug abuse [Unknown]
  - Agitation [Recovering/Resolving]
  - Homicidal ideation [Recovering/Resolving]
  - Hypophagia [Recovering/Resolving]
  - Hallucination [Recovering/Resolving]
  - Thinking abnormal [Recovering/Resolving]
  - Behaviour disorder [Recovering/Resolving]
